FAERS Safety Report 18554135 (Version 1)
Quarter: 2020Q4

REPORT INFORMATION
  Report Type: Spontaneous
  Country: US (occurrence: US)
  Receive Date: 20201127
  Receipt Date: 20201127
  Transmission Date: 20210114
  Serious: No
  Sender: FDA-Public Use
  Company Number: US-ASTRAZENECA-2020SF49924

PATIENT
  Age: 78 Year
  Sex: Female

DRUGS (2)
  1. BREZTRI AEROSPHERE [Suspect]
     Active Substance: BUDESONIDE\FORMOTEROL\GLYCOPYRRONIUM
     Indication: CHRONIC OBSTRUCTIVE PULMONARY DISEASE
     Dosage: 160-9-4.8MCG 1X28 2 PUFFS BID
     Route: 055
     Dates: start: 20201010
  2. LEVALBUTEROL. [Concomitant]
     Active Substance: LEVALBUTEROL

REACTIONS (3)
  - Wrong technique in product usage process [Unknown]
  - Wheezing [Unknown]
  - Malaise [Unknown]

NARRATIVE: CASE EVENT DATE: 2020
